FAERS Safety Report 7229231-2 (Version None)
Quarter: 2011Q1

REPORT INFORMATION
  Report Type: 
  Country: None (occurrence: None)
  Receive Date: 20110117
  Receipt Date: 20110104
  Transmission Date: 20110831
  Serious: Yes (Hospitalization)
  Sender: FDA-Public Use
  Company Number: GB-ELI_LILLY_AND_COMPANY-GB201101000400

PATIENT
  Age: 62 Year
  Sex: Female

DRUGS (5)
  1. PROZAC [Suspect]
     Dosage: 20 MG, DAILY (1/D)
     Route: 048
  2. FERROUS SULFATE TAB [Concomitant]
     Dosage: 200 MG, 3/D
     Route: 048
  3. TEMAZEPAM [Concomitant]
     Indication: POOR QUALITY SLEEP
     Dosage: 10 MG, AS NEEDED
     Route: 048
  4. IBUPROFEN [Concomitant]
     Route: 048
  5. ASPIRIN [Concomitant]
     Dosage: 75 MG, DAILY (1/D)
     Route: 048

REACTIONS (1)
  - DUODENAL ULCER PERFORATION [None]
